FAERS Safety Report 5718886-7 (Version None)
Quarter: 2008Q2

REPORT INFORMATION
  Report Type: 
  Country: None (occurrence: None)
  Receive Date: 20080423
  Receipt Date: 20080411
  Transmission Date: 20081010
  Serious: Yes (Death)
  Sender: FDA-Public Use
  Company Number: GXKR2007GB08599

PATIENT
  Age: 67 Year
  Sex: Male
  Weight: 111 kg

DRUGS (27)
  1. ERYTHROMYCIN [Suspect]
     Indication: LOWER RESPIRATORY TRACT INFECTION
  2. DOXYCYCLINE [Suspect]
     Dosage: ORAL
     Route: 048
  3. RIMONABANT(RIMONABANT) UNKNOWN [Suspect]
     Indication: WEIGHT DECREASED
     Dosage: 20 MG, QD, ORAL
     Route: 048
  4. ALLOPURINOL [Concomitant]
  5. AMOXICILLIN [Concomitant]
  6. ASPIRIN [Concomitant]
  7. ATORVASTATIN CALCIUM [Concomitant]
  8. BUDESONIDE [Concomitant]
  9. CHLORHEXIDINE GLUCONATE [Concomitant]
  10. CIALIS [Concomitant]
  11. DAKTACORT (HYDROCORTISONE, MICONAZOLE NITRATE) [Concomitant]
  12. DIPROBASE OINTMENT (PARAFFIN, LIQUID, WHITE SOFT PARAFFIN) OINTMENT [Concomitant]
  13. DOUBLEBASE L [Concomitant]
  14. FORMOTEROL (FORMOTEROL) [Concomitant]
  15. FORMOTEROL FUMARATE (FORMOTEROL FUMARATE) [Concomitant]
  16. FUROSEMIDE [Concomitant]
  17. GLIPIZIDE [Concomitant]
  18. HYDROCHLOROTHIAZIDE [Concomitant]
  19. LANSOPRAZOLE [Concomitant]
  20. LISINOPRIL [Concomitant]
  21. METFORMIN HCL [Concomitant]
  22. MICONAZOLE [Concomitant]
  23. PREDNISOLONE [Concomitant]
  24. RAMIPRIL [Concomitant]
  25. ROSIGLITAZONE [Concomitant]
  26. SALAMOL (SALBUTAMOL SULFATE) (SALBUTAMOL SULFATE) [Concomitant]
  27. TIOTROPIUM BROMIDE (TIOTROPIUM BROMIDE) [Concomitant]

REACTIONS (23)
  - ANAEMIA [None]
  - BLOOD POTASSIUM INCREASED [None]
  - BRONCHOPULMONARY ASPERGILLOSIS [None]
  - CONFUSIONAL STATE [None]
  - CORNEAL ABRASION [None]
  - DEPRESSED LEVEL OF CONSCIOUSNESS [None]
  - DERMATITIS EXFOLIATIVE [None]
  - DIARRHOEA [None]
  - DRUG INTERACTION [None]
  - ENTEROBACTER INFECTION [None]
  - EOSINOPHILIA [None]
  - GENERAL PHYSICAL HEALTH DETERIORATION [None]
  - HYPOTENSION [None]
  - LABILE BLOOD PRESSURE [None]
  - LOWER RESPIRATORY TRACT INFECTION [None]
  - MUCOSAL INFLAMMATION [None]
  - ORAL INTAKE REDUCED [None]
  - PNEUMONIA FUNGAL [None]
  - PROTEUS INFECTION [None]
  - RENAL FAILURE ACUTE [None]
  - STEVENS-JOHNSON SYNDROME [None]
  - THROMBOCYTOPENIA [None]
  - TOXIC SHOCK SYNDROME [None]
